FAERS Safety Report 23927695 (Version 2)
Quarter: 2024Q4

REPORT INFORMATION
  Report Type: Spontaneous
  Country: US (occurrence: US)
  Receive Date: 20240531
  Receipt Date: 20241217
  Transmission Date: 20250115
  Serious: Yes (Death, Other)
  Sender: pharmaAND
  Company Number: US-Pharmaand-2024000375

PATIENT

DRUGS (1)
  1. PEGASYS [Suspect]
     Active Substance: PEGINTERFERON ALFA-2A
     Indication: Hepatitis C
     Route: 058
     Dates: start: 2015

REACTIONS (2)
  - Foetal death [Fatal]
  - Maternal exposure during pregnancy [Fatal]
